FAERS Safety Report 8532628-1 (Version None)
Quarter: 2012Q3

REPORT INFORMATION
  Report Type: 
  Country: None (occurrence: None)
  Receive Date: 20120724
  Receipt Date: 20120607
  Transmission Date: 20120928
  Serious: Yes (Hospitalization, Other)
  Sender: FDA-Public Use
  Company Number: JP-BRISTOL-MYERS SQUIBB COMPANY-16663619

PATIENT
  Age: 77 Year

DRUGS (2)
  1. AMARYL [Suspect]
     Route: 048
  2. METFORMIN HCL [Suspect]
     Route: 048

REACTIONS (3)
  - DEHYDRATION [None]
  - BLOOD CREATININE INCREASED [None]
  - HYPOGLYCAEMIA [None]
